FAERS Safety Report 9785317 (Version 1)
Quarter: 2013Q4

REPORT INFORMATION
  Report Type: Report from Study
  Country: CA (occurrence: CA)
  Receive Date: 20131227
  Receipt Date: 20131227
  Transmission Date: 20140711
  Serious: Yes (Other)
  Sender: FDA-Public Use
  Company Number: CA-JNJFOC-20131215040

PATIENT
  Age: 59 Year
  Sex: Male
  Weight: 93.5 kg

DRUGS (14)
  1. REMICADE [Suspect]
     Indication: PSORIATIC ARTHROPATHY
     Route: 042
  2. MELOXICAM [Concomitant]
     Route: 065
  3. AMITRIPTYLINE [Concomitant]
     Route: 065
  4. TERAZOSIN [Concomitant]
     Route: 065
  5. METHOTREXATE [Concomitant]
     Route: 065
  6. LANSOPRAZOLE [Concomitant]
     Route: 065
  7. FOLIC ACID [Concomitant]
     Route: 065
  8. CIPROLEX [Concomitant]
     Route: 065
  9. SYNTHROID [Concomitant]
     Route: 065
  10. APOKYN [Concomitant]
     Route: 065
  11. CIPRO [Concomitant]
     Route: 065
  12. SEROQUEL [Concomitant]
     Route: 065
  13. EVION [Concomitant]
     Route: 065
  14. FENTANYL PATCH [Concomitant]
     Route: 065

REACTIONS (1)
  - Chest pain [Recovered/Resolved]
